FAERS Safety Report 13249667 (Version 1)
Quarter: 2017Q1

REPORT INFORMATION
  Report Type: Spontaneous
  Country: US (occurrence: US)
  Receive Date: 20170218
  Receipt Date: 20170218
  Transmission Date: 20170428
  Serious: No
  Sender: FDA-Public Use
  Company Number: US-ALLERGAN-1671649US

PATIENT
  Age: 65 Year
  Sex: Female
  Weight: 81.63 kg

DRUGS (6)
  1. PROPRANOLOL [Concomitant]
     Active Substance: PROPRANOLOL HYDROCHLORIDE
     Indication: MIGRAINE
     Dosage: UNK
     Route: 048
  2. METFORMIN [Concomitant]
     Active Substance: METFORMIN HYDROCHLORIDE
     Indication: DIABETES MELLITUS
     Dosage: UNK
     Route: 048
  3. ASA [Concomitant]
     Active Substance: ASPIRIN
     Dosage: 81 MG, QD
     Route: 048
  4. VITAMIN C [Concomitant]
     Active Substance: ASCORBIC ACID
     Indication: SUPPLEMENTATION THERAPY
     Dosage: UNK
     Route: 048
  5. RESTASIS [Suspect]
     Active Substance: CYCLOSPORINE
     Indication: DRY EYE
     Dosage: 2 GTT, BID
     Route: 047
     Dates: start: 20160903, end: 20161001
  6. NIACIN. [Concomitant]
     Active Substance: NIACIN
     Dosage: UNK
     Route: 048

REACTIONS (9)
  - Dermatitis [Recovering/Resolving]
  - Eyelid oedema [Recovering/Resolving]
  - Eyelid exfoliation [Recovering/Resolving]
  - Eyelids pruritus [Recovered/Resolved]
  - Discomfort [Recovering/Resolving]
  - Stress [Recovering/Resolving]
  - Vision blurred [Unknown]
  - Hypersensitivity [Recovering/Resolving]
  - Eyelid irritation [Recovered/Resolved]

NARRATIVE: CASE EVENT DATE: 20160903
